FAERS Safety Report 6152466-7 (Version None)
Quarter: 2009Q2

REPORT INFORMATION
  Report Type: 
  Country: None (occurrence: None)
  Receive Date: 20090413
  Receipt Date: 20090401
  Transmission Date: 20091009
  Serious: Yes (Hospitalization, Other)
  Sender: FDA-Public Use
  Company Number: PHHY2009BR12632

PATIENT
  Age: 75 Year
  Sex: Male
  Weight: 74 kg

DRUGS (5)
  1. DIOVAN [Suspect]
     Indication: HYPERTENSION
     Dosage: 1 TAB/DAY, IN THE MORNING
     Route: 048
     Dates: start: 20060101
  2. HUMULIN R [Concomitant]
     Indication: DIABETES MELLITUS
     Dosage: 10 IU/DAY
     Route: 058
     Dates: start: 20010101
  3. HUMULIN N [Concomitant]
     Indication: DIABETES MELLITUS
     Dosage: 8 IU, BID
     Route: 058
     Dates: start: 20010101
  4. HUMULIN N [Concomitant]
     Dosage: 5 IU
  5. FRESH GOLD [Concomitant]
     Indication: LIPIDS INCREASED
     Dosage: 1 CAPSULE A DAY
     Route: 048

REACTIONS (7)
  - ANGINA PECTORIS [None]
  - CATHETERISATION CARDIAC [None]
  - CHEST DISCOMFORT [None]
  - CHEST PAIN [None]
  - CORONARY ARTERY BYPASS [None]
  - CORONARY ARTERY STENOSIS [None]
  - MYALGIA [None]
